APPROVED DRUG PRODUCT: PRAMIPEXOLE DIHYDROCHLORIDE
Active Ingredient: PRAMIPEXOLE DIHYDROCHLORIDE
Strength: 0.5MG
Dosage Form/Route: TABLET;ORAL
Application: A077724 | Product #003
Applicant: HERITAGE PHARMA LABS INC DBA AVET PHARMACEUTICALS LABS INC
Approved: Feb 19, 2008 | RLD: No | RS: No | Type: DISCN